FAERS Safety Report 7790821-X (Version None)
Quarter: 2011Q3

REPORT INFORMATION
  Report Type: 
  Country: None (occurrence: None)
  Receive Date: 20110930
  Receipt Date: 20110923
  Transmission Date: 20111222
  Serious: Yes (Hospitalization)
  Sender: FDA-Public Use
  Company Number: US-ASTRAZENECA-2011SE57654

PATIENT
  Age: 69 Year
  Sex: Male

DRUGS (2)
  1. METOPROLOL TARTRATE [Suspect]
     Route: 065
  2. ATACAND [Suspect]
     Route: 048

REACTIONS (3)
  - HYPOTENSION [None]
  - FALL [None]
  - CEREBRAL HAEMORRHAGE [None]
